FAERS Safety Report 4483577-X (Version None)
Quarter: 2004Q4

REPORT INFORMATION
  Report Type: 
  Country: None (occurrence: None)
  Receive Date: 20041021
  Receipt Date: 20041021
  Transmission Date: 20050328
  Serious: Yes (Other)
  Sender: FDA-Public Use
  Company Number: None

PATIENT
  Age: 26 Year
  Sex: Male
  Weight: 90.9 kg

DRUGS (3)
  1. ARIPIPRAZOLE [Suspect]
  2. FLUTICASONE PROP [Concomitant]
  3. LORATADINE [Concomitant]

REACTIONS (1)
  - DYSKINESIA [None]
